FAERS Safety Report 7126424-X (Version None)
Quarter: 2010Q4

REPORT INFORMATION
  Report Type: 
  Country: None (occurrence: None)
  Receive Date: 20101115
  Receipt Date: 20101109
  Transmission Date: 20110411
  Serious: Yes (Hospitalization)
  Sender: FDA-Public Use
  Company Number: 2009AC000025

PATIENT
  Age: 74 Year
  Sex: Female

DRUGS (67)
  1. DIGOXIN [Suspect]
     Dosage: 0.25 MG; QD; PO
     Route: 048
     Dates: start: 20070101, end: 20080701
  2. DIGOXIN [Suspect]
     Dosage: 0.125 MG;QD;PO
     Route: 048
     Dates: start: 20081201
  3. COREG [Concomitant]
  4. BACTRIM [Concomitant]
  5. ZAROXOLYN [Concomitant]
  6. PLAVIX [Concomitant]
  7. ZYRTEC [Concomitant]
  8. LASIX [Concomitant]
  9. SIMVASTATIN [Concomitant]
  10. GABAPENTIN [Concomitant]
  11. MICARDIS [Concomitant]
  12. PRILOSEC [Concomitant]
  13. SPIRONOLACTONE [Concomitant]
  14. ASPIRIN [Concomitant]
  15. MELOXICAM [Concomitant]
  16. NOVOLOG [Concomitant]
  17. REQUIP [Concomitant]
  18. FLUOXETINE [Concomitant]
  19. AMITRIPTYLINE [Concomitant]
  20. METHOCARBAMOL [Concomitant]
  21. TRAMADOL [Concomitant]
  22. TEMAZEPAM [Concomitant]
  23. LORATADINE [Concomitant]
  24. METOLAZONE [Concomitant]
  25. MICARDIS HCT [Concomitant]
  26. COUMADIN [Concomitant]
  27. SPIRIVA [Concomitant]
  28. ADVAIR DISKUS 100/50 [Concomitant]
  29. CRESTOR [Concomitant]
  30. POTASSIUM CHLORIDE [Concomitant]
  31. TROPROL [Concomitant]
  32. ETODOLAC [Concomitant]
  33. COLCHICINE [Concomitant]
  34. TRAMADOL [Concomitant]
  35. PRILOSEC [Concomitant]
  36. METHOCARBAMOL [Concomitant]
  37. NEURONTIN [Concomitant]
  38. AMITRIPTYLINE [Concomitant]
  39. LANTUS [Concomitant]
  40. VITAMIN B-12 [Concomitant]
  41. AMITRIPTYLINE [Concomitant]
  42. VISTRA [Concomitant]
  43. ASPIRIN [Concomitant]
  44. PHENERGAN [Concomitant]
  45. PROZAC [Concomitant]
  46. MOBIC [Concomitant]
  47. ZOCOR [Concomitant]
  48. RESTORIL [Concomitant]
  49. ELAVIL [Concomitant]
  50. MORPHINE [Concomitant]
  51. REGLAN [Concomitant]
  52. COMBIVNET [Concomitant]
  53. IRON [Concomitant]
  54. PANTOPRAZOLE [Concomitant]
  55. SULFAMETOXAZOLE [Concomitant]
  56. LISINOPRIL [Concomitant]
  57. BUPROPION [Concomitant]
  58. LORAZEPAM [Concomitant]
  59. METFORMIN [Concomitant]
  60. EFFEXOR [Concomitant]
  61. DETROL [Concomitant]
  62. REMERON [Concomitant]
  63. DIGIBIND [Concomitant]
  64. DOPAMINE [Concomitant]
  65. ATROPINE [Concomitant]
  66. FENTANYL CITRATE [Concomitant]
  67. OXYGEN [Concomitant]

REACTIONS (79)
  - ABDOMINAL PAIN [None]
  - AGGRESSION [None]
  - ANXIETY [None]
  - AORTIC VALVE INCOMPETENCE [None]
  - APHAGIA [None]
  - ATRIAL FIBRILLATION [None]
  - ATRIAL FLUTTER [None]
  - ATRIAL SEPTAL DEFECT [None]
  - BLINDNESS [None]
  - BLOOD CHLORIDE DECREASED [None]
  - BRADYCARDIA [None]
  - BUNDLE BRANCH BLOCK LEFT [None]
  - BUNDLE BRANCH BLOCK RIGHT [None]
  - CARDIAC ARREST [None]
  - CARDIAC FAILURE CONGESTIVE [None]
  - CELLULITIS [None]
  - CEREBRAL INFARCTION [None]
  - CEREBROVASCULAR ACCIDENT [None]
  - CHOLELITHIASIS [None]
  - COLONIC POLYP [None]
  - CONDITION AGGRAVATED [None]
  - CONFUSIONAL STATE [None]
  - CORONARY ARTERY STENOSIS [None]
  - DECREASED APPETITE [None]
  - DECUBITUS ULCER [None]
  - DEMENTIA [None]
  - DEPRESSION [None]
  - DIABETES MELLITUS INADEQUATE CONTROL [None]
  - DIABETIC NEUROPATHY [None]
  - DIALYSIS [None]
  - DIVERTICULUM [None]
  - DIZZINESS [None]
  - DYSPHAGIA [None]
  - DYSPNOEA [None]
  - ELECTROLYTE IMBALANCE [None]
  - FAECALOMA [None]
  - FATIGUE [None]
  - GASTRIC HYPOMOTILITY [None]
  - GASTROINTESTINAL HAEMORRHAGE [None]
  - GENERAL PHYSICAL HEALTH DETERIORATION [None]
  - GENERALISED OEDEMA [None]
  - HEART RATE INCREASED [None]
  - HEART RATE IRREGULAR [None]
  - HIATUS HERNIA [None]
  - HYPERTONIC BLADDER [None]
  - HYPONATRAEMIA [None]
  - HYPOTENSION [None]
  - INCOHERENT [None]
  - KERATOCONJUNCTIVITIS SICCA [None]
  - LIVER FUNCTION TEST ABNORMAL [None]
  - MENTAL STATUS CHANGES [None]
  - METABOLIC ENCEPHALOPATHY [None]
  - MITRAL VALVE INCOMPETENCE [None]
  - MUSCULOSKELETAL PAIN [None]
  - NAUSEA [None]
  - NODAL RHYTHM [None]
  - OEDEMA PERIPHERAL [None]
  - ORTHOPNOEA [None]
  - PAIN [None]
  - PAIN IN EXTREMITY [None]
  - PALPITATIONS [None]
  - PARAESTHESIA [None]
  - PNEUMONIA [None]
  - PRODUCTIVE COUGH [None]
  - PRURITUS [None]
  - PULMONARY OEDEMA [None]
  - RALES [None]
  - RENAL FAILURE CHRONIC [None]
  - SICK SINUS SYNDROME [None]
  - SUICIDE ATTEMPT [None]
  - THERAPEUTIC AGENT TOXICITY [None]
  - TORSADE DE POINTES [None]
  - TOXIC ENCEPHALOPATHY [None]
  - TREATMENT NONCOMPLIANCE [None]
  - TRICUSPID VALVE INCOMPETENCE [None]
  - URINARY TRACT INFECTION [None]
  - VENTRICULAR EXTRASYSTOLES [None]
  - WEIGHT DECREASED [None]
  - WHEEZING [None]
